FAERS Safety Report 8871674 (Version 1)
Quarter: 2012Q4

REPORT INFORMATION
  Report Type: 
  Country: US (occurrence: US)
  Receive Date: 20121023
  Receipt Date: 20121023
  Transmission Date: 20130627
  Serious: Yes (Other)
  Sender: FDA-Public Use
  Company Number: US-ASTELLAS-2012US006529

PATIENT

DRUGS (1)
  1. PROGRAF [Suspect]
     Indication: RENAL TRANSPLANT
     Dosage: 2 mg in the morning and 1 mg in the afternoon
     Route: 065
     Dates: start: 20060609

REACTIONS (2)
  - Visual acuity reduced [Not Recovered/Not Resolved]
  - Oedema peripheral [Unknown]
